FAERS Safety Report 9147585 (Version 2)
Quarter: 2013Q1

REPORT INFORMATION
  Report Type: Spontaneous
  Country: US (occurrence: US)
  Receive Date: 20130307
  Receipt Date: 20130312
  Transmission Date: 20140127
  Serious: Yes (Death)
  Sender: FDA-Public Use
  Company Number: US-BAXTER-2013BAX008179

PATIENT
  Sex: Male

DRUGS (1)
  1. HEPARIN SODIUM IN 0.9% SODIUM CHLORIDE INJECTION [Suspect]
     Indication: HEART VALVE REPLACEMENT
     Route: 065

REACTIONS (1)
  - Cerebrovascular accident [Fatal]
